FAERS Safety Report 23667776 (Version 7)
Quarter: 2025Q1

REPORT INFORMATION
  Report Type: Report from Study
  Country: KR (occurrence: KR)
  Receive Date: 20240325
  Receipt Date: 20250330
  Transmission Date: 20250409
  Serious: Yes (Death, Hospitalization, Other)
  Sender: ABBVIE
  Company Number: KR-ABBVIE-5689513

PATIENT
  Age: 39 Year
  Sex: Female
  Weight: 53 kg

DRUGS (20)
  1. RINVOQ [Suspect]
     Active Substance: UPADACITINIB
     Indication: Dermatitis atopic
     Route: 048
     Dates: start: 20240203, end: 20240308
  2. RINVOQ [Suspect]
     Active Substance: UPADACITINIB
     Indication: Dermatitis atopic
     Route: 048
     Dates: start: 20231221, end: 20240130
  3. RINVOQ [Suspect]
     Active Substance: UPADACITINIB
     Indication: Dermatitis atopic
     Route: 048
     Dates: start: 20231126, end: 20231215
  4. RINVOQ [Suspect]
     Active Substance: UPADACITINIB
     Indication: Dermatitis atopic
     Route: 048
     Dates: start: 20230906, end: 20231121
  5. Seropram [Concomitant]
     Indication: Panic disorder
     Dosage: FORM STRENGHT- 10MG
     Route: 048
     Dates: start: 20230906
  6. PROPRANOLOL HYDROCHLORIDE [Concomitant]
     Active Substance: PROPRANOLOL HYDROCHLORIDE
     Indication: Panic disorder
     Dosage: FORM STRENGTH- 40MG?DOSE: 0.5 DOSAGE FORM
     Route: 048
  7. PROPRANOLOL HYDROCHLORIDE [Concomitant]
     Active Substance: PROPRANOLOL HYDROCHLORIDE
     Indication: Panic disorder
     Dosage: FORM STRENGTH- 10MG
     Route: 048
     Dates: start: 20230906
  8. OLMESARTAN MEDOXOMIL [Concomitant]
     Active Substance: OLMESARTAN MEDOXOMIL
     Indication: Hypertension
     Dosage: FORM STRENGTH- 10MG
     Route: 048
     Dates: start: 20231120
  9. OLMESARTAN MEDOXOMIL [Concomitant]
     Active Substance: OLMESARTAN MEDOXOMIL
     Indication: Hypertension
     Dosage: FORM STRENGTH- 20MG
     Route: 048
     Dates: start: 20230925, end: 20231119
  10. Zanapam [Concomitant]
     Indication: Panic disorder
     Dosage: FORM STRENGTH- 0.25MG
     Route: 048
     Dates: start: 20230906
  11. Zanapam [Concomitant]
     Indication: Panic disorder
     Dosage: FORM STRENGTH- 0.125MG
     Route: 048
     Dates: start: 20230906
  12. CILOSTAZOL [Concomitant]
     Active Substance: CILOSTAZOL
     Indication: Hypertension
     Dosage: FORM STRENGTH- 50MG
     Route: 048
     Dates: start: 20230906
  13. Youngpoong doxycycline [Concomitant]
     Indication: Dermatitis atopic
     Dosage: FORM STRENGTH- 100MG
     Route: 048
     Dates: start: 20231115
  14. TRIAZOLAM [Concomitant]
     Active Substance: TRIAZOLAM
     Indication: Panic disorder
     Dosage: FORM STRENGTH- 0.25MG
     Route: 048
     Dates: start: 20230906
  15. Myungin lithium carbonate [Concomitant]
     Indication: Panic disorder
     Dosage: FORM STRENGTH- 300MG
     Route: 048
     Dates: start: 20230906
  16. DILTIAZEM HYDROCHLORIDE [Concomitant]
     Active Substance: DILTIAZEM HYDROCHLORIDE
     Indication: Hypertension
     Dosage: FORM STRENGTH-90MG, RETARD
     Route: 048
     Dates: start: 20230906
  17. LANSOPRAZOLE [Concomitant]
     Active Substance: LANSOPRAZOLE
     Indication: Hypertension
     Dosage: FORM STRENGTH- 15MG
     Route: 048
     Dates: start: 20230906
  18. NICORANDIL [Concomitant]
     Active Substance: NICORANDIL
     Indication: Hypertension
     Route: 048
     Dates: start: 20230906
  19. RIVOTRIL [Concomitant]
     Active Substance: CLONAZEPAM
     Indication: Panic disorder
     Route: 048
     Dates: start: 20230906
  20. Eltan sr [Concomitant]
     Indication: Hypertension
     Dosage: FORM STRENGTH-60 MG
     Route: 048
     Dates: start: 20230906

REACTIONS (6)
  - Toxicity to various agents [Fatal]
  - Cardiac arrest [Fatal]
  - Cardiac arrest [Recovered/Resolved]
  - Bradycardia [Recovered/Resolved]
  - Orthostatic hypotension [Recovered/Resolved]
  - Bradycardia [Recovered/Resolved]

NARRATIVE: CASE EVENT DATE: 20231121
